FAERS Safety Report 9310965 (Version 1)
Quarter: 2013Q1

REPORT INFORMATION
  Report Type: Spontaneous
  Country: JP (occurrence: None)
  Receive Date: 20130206
  Receipt Date: 20130206
  Transmission Date: 20140127
  Serious: Yes (Hospitalization)
  Sender: FDA-Public Use
  Company Number: TCI2012A07083

PATIENT
  Age: 68 Year
  Sex: Female

DRUGS (2)
  1. NESINA [Suspect]
     Indication: TYPE 2 DIABETES MELLITUS
     Route: 048
     Dates: start: 20121113, end: 20121128
  2. BLOPRESS (CANDESARTAN CILEXETIL) [Concomitant]

REACTIONS (1)
  - Stevens-Johnson syndrome [None]
